FAERS Safety Report 25262955 (Version 1)
Quarter: 2025Q2

REPORT INFORMATION
  Report Type: Spontaneous
  Country: US (occurrence: US)
  Receive Date: 20250502
  Receipt Date: 20250502
  Transmission Date: 20250717
  Serious: No
  Sender: QOL MEDICAL, LLC
  Company Number: US-QOL Medical, LLC-2176037

PATIENT
  Age: 68 Year
  Sex: Female

DRUGS (11)
  1. SUCRAID [Suspect]
     Active Substance: SACROSIDASE
     Dates: start: 20240413, end: 20240414
  2. LISINOPRIL [Concomitant]
     Active Substance: LISINOPRIL
  3. CLOPIDOGREL [Concomitant]
     Active Substance: CLOPIDOGREL BISULFATE
  4. IRON [Concomitant]
     Active Substance: IRON
  5. ZENPEP [Concomitant]
     Active Substance: PANCRELIPASE AMYLASE\PANCRELIPASE LIPASE\PANCRELIPASE PROTEASE
  6. ZONISAMIDE [Concomitant]
     Active Substance: ZONISAMIDE
  7. ATORVASTATIN CALCIUM [Concomitant]
     Active Substance: ATORVASTATIN CALCIUM
  8. METOPROLOL SUCCINATE [Concomitant]
     Active Substance: METOPROLOL SUCCINATE
  9. HYDRALAZINE HYDROCHLORIDE [Concomitant]
     Active Substance: HYDRALAZINE HYDROCHLORIDE
  10. OMEPRAZOLE [Concomitant]
     Active Substance: OMEPRAZOLE
  11. DULOXETINE HYDROCHLORIDE [Concomitant]
     Active Substance: DULOXETINE HYDROCHLORIDE

REACTIONS (2)
  - Palpitations [Unknown]
  - Tachycardia [Unknown]

NARRATIVE: CASE EVENT DATE: 20240413
